FAERS Safety Report 5182436-7 (Version None)
Quarter: 2006Q4

REPORT INFORMATION
  Report Type: 
  Country: None (occurrence: None)
  Receive Date: 20061220
  Receipt Date: 20060914
  Transmission Date: 20070319
  Serious: No
  Sender: FDA-Public Use
  Company Number: US-GLAXOSMITHKLINE-A0620138A

PATIENT
  Age: 59 Year
  Sex: Female

DRUGS (7)
  1. COMMIT [Suspect]
  2. COMMIT [Suspect]
  3. NICORETTE [Suspect]
  4. NICORETTE [Suspect]
  5. NICORETTE [Suspect]
  6. NICORETTE [Suspect]
  7. NICODERM CQ [Suspect]

REACTIONS (6)
  - APPLICATION SITE HYPERAESTHESIA [None]
  - APPLICATION SITE PRURITUS [None]
  - DENTAL CARIES [None]
  - INTENTIONAL DRUG MISUSE [None]
  - TOOTH DISORDER [None]
  - TOOTH INJURY [None]
